FAERS Safety Report 6628675-7 (Version None)
Quarter: 2010Q1

REPORT INFORMATION
  Report Type: 
  Country: None (occurrence: None)
  Receive Date: 20100311
  Receipt Date: 20100226
  Transmission Date: 20100710
  Serious: Yes (Other)
  Sender: FDA-Public Use
  Company Number: JP-PFIZER INC-2010026824

PATIENT
  Age: 46 Year
  Sex: Female

DRUGS (1)
  1. GABAPEN [Suspect]
     Indication: PAIN
     Dosage: 600 MG, 1X/DAY
     Route: 048
     Dates: start: 20091030, end: 20100213

REACTIONS (3)
  - CONVULSION [None]
  - DEPRESSED LEVEL OF CONSCIOUSNESS [None]
  - HYPOPNOEA [None]
